FAERS Safety Report 15946404 (Version 1)
Quarter: 2019Q1

REPORT INFORMATION
  Report Type: Spontaneous
  Country: US (occurrence: US)
  Receive Date: 20190212
  Receipt Date: 20190212
  Transmission Date: 20190417
  Serious: No
  Sender: FDA-Public Use
  Company Number: US-TEVA-2019-US-1011580

PATIENT
  Age: 62 Year
  Sex: Female
  Weight: 93 kg

DRUGS (2)
  1. MEXILETINE [Concomitant]
     Active Substance: MEXILETINE
  2. AJOVY [Suspect]
     Active Substance: FREMANEZUMAB-VFRM
     Indication: MIGRAINE
     Dosage: 225MG/1.5 ML, ONE INJECTION MONTHLY, IN THE THIGH
     Dates: start: 201811

REACTIONS (1)
  - Alopecia [Unknown]

NARRATIVE: CASE EVENT DATE: 201812
